FAERS Safety Report 9175877 (Version 1)
Quarter: 2013Q1

REPORT INFORMATION
  Report Type: Report from Study
  Country: JP (occurrence: JP)
  Receive Date: 20130320
  Receipt Date: 20130320
  Transmission Date: 20140127
  Serious: Yes (Hospitalization)
  Sender: FDA-Public Use
  Company Number: JP-ACTELION-A-CH2013-77423

PATIENT
  Age: 38 Year
  Sex: Female
  Weight: 68.8 kg

DRUGS (13)
  1. TRACLEER [Suspect]
     Indication: PULMONARY ARTERIAL HYPERTENSION
     Dosage: 125 MG, BID
     Route: 048
     Dates: start: 20091005
  2. SILDENAFIL [Suspect]
     Dosage: 40 MG, UNK
     Dates: start: 20100428, end: 20100511
  3. SILDENAFIL [Suspect]
     Dosage: 60 MG, UNK
     Dates: start: 20100512, end: 20100526
  4. SILDENAFIL [Suspect]
     Dosage: 40 MG, UNK
     Dates: start: 20100527, end: 20100622
  5. SILDENAFIL [Suspect]
     Dosage: 20 MG, UNK
     Dates: start: 20100623, end: 20100810
  6. SILDENAFIL [Suspect]
     Dosage: 40 MG, UNK
     Dates: start: 20100811, end: 20100824
  7. SILDENAFIL [Suspect]
     Dosage: 60 MG, UNK
     Dates: start: 20100825
  8. CYCLOPHOSPHAMIDE [Suspect]
  9. PREDNISOLONE [Concomitant]
  10. FAMOTIDINE [Concomitant]
  11. ATORVASTATIN CALCIUM [Concomitant]
  12. EPINASTINE HYDROCHLORIDE [Concomitant]
  13. ALENDRONATE SODIUM [Concomitant]

REACTIONS (11)
  - Upper respiratory tract inflammation [Recovered/Resolved]
  - Pyrexia [Recovered/Resolved]
  - Sepsis [Recovered/Resolved]
  - White blood cell count decreased [Recovered/Resolved]
  - Hepatic function abnormal [Recovered/Resolved]
  - Mixed connective tissue disease [Recovered/Resolved]
  - Concomitant disease aggravated [Recovered/Resolved]
  - Meningitis aseptic [Recovered/Resolved]
  - Gastroenteritis [Recovered/Resolved]
  - Diarrhoea [Recovered/Resolved]
  - Influenza [Recovered/Resolved]
